FAERS Safety Report 6206160-4 (Version None)
Quarter: 2009Q2

REPORT INFORMATION
  Report Type: 
  Country: None (occurrence: None)
  Receive Date: 20090528
  Receipt Date: 20080724
  Transmission Date: 20091009
  Serious: No
  Sender: FDA-Public Use
  Company Number: US-KINGPHARMUSA00001-K200800868

PATIENT
  Sex: Female

DRUGS (3)
  1. AVINZA [Suspect]
     Indication: PAIN
     Dosage: 30 MG, QD
     Route: 048
     Dates: start: 20080701, end: 20080701
  2. AVINZA [Suspect]
     Dosage: 60 MG, QD
     Route: 048
     Dates: start: 20080701
  3. LOVASTATIN [Concomitant]
     Indication: CHOLESTEROSIS
     Dosage: UNK, UNK

REACTIONS (1)
  - DYSPNOEA [None]
